FAERS Safety Report 5500968-6 (Version None)
Quarter: 2007Q4

REPORT INFORMATION
  Report Type: 
  Country: None (occurrence: None)
  Receive Date: 20071029
  Receipt Date: 20071017
  Transmission Date: 20080405
  Serious: Yes (Other)
  Sender: FDA-Public Use
  Company Number: PHHO2006AU14025

PATIENT
  Sex: Female

DRUGS (4)
  1. ZOLEDRONIC ACID [Suspect]
     Indication: MULTIPLE MYELOMA
  2. PREDNISOLONE [Concomitant]
     Indication: MULTIPLE MYELOMA
  3. THALIDOMIDE [Concomitant]
     Indication: MULTIPLE MYELOMA
  4. CHEMOTHERAPEUTICS NOS [Concomitant]

REACTIONS (4)
  - BONE LESION [None]
  - ORAL DISORDER [None]
  - OSTEONECROSIS [None]
  - PERIODONTAL INFECTION [None]
